FAERS Safety Report 6445928-6 (Version None)
Quarter: 2009Q4

REPORT INFORMATION
  Report Type: 
  Country: None (occurrence: None)
  Receive Date: 20091119
  Receipt Date: 20090112
  Transmission Date: 20100525
  Serious: No
  Sender: FDA-Public Use
  Company Number: A0764602A

PATIENT
  Age: 42 Year
  Sex: Male

DRUGS (2)
  1. BUPROPION HCL [Suspect]
     Dosage: 150MG TWICE PER DAY
     Route: 048
  2. BUPROPION HCL [Suspect]
     Dosage: 150MG UNKNOWN
     Route: 048

REACTIONS (6)
  - ANXIETY [None]
  - DRY MOUTH [None]
  - HEADACHE [None]
  - OFF LABEL USE [None]
  - RESTLESSNESS [None]
  - SLEEP DISORDER [None]
